FAERS Safety Report 14322652 (Version 1)
Quarter: 2017Q4

REPORT INFORMATION
  Report Type: Spontaneous
  Country: JP (occurrence: JP)
  Receive Date: 20171225
  Receipt Date: 20171225
  Transmission Date: 20180321
  Serious: Yes (Hospitalization)
  Sender: FDA-Public Use
  Company Number: JP-SA-2017SA252695

PATIENT

DRUGS (1)
  1. LANTUS [Suspect]
     Active Substance: INSULIN GLARGINE
     Dosage: DOSE:17 UNIT(S)
     Route: 058

REACTIONS (2)
  - Blood glucose abnormal [Unknown]
  - Hospitalisation [Unknown]

NARRATIVE: CASE EVENT DATE: 20171211
